FAERS Safety Report 5696426-9 (Version None)
Quarter: 2008Q2

REPORT INFORMATION
  Report Type: 
  Country: None (occurrence: None)
  Receive Date: 20080404
  Receipt Date: 20080404
  Transmission Date: 20081010
  Serious: Yes (Hospitalization)
  Sender: FDA-Public Use
  Company Number: None

PATIENT
  Age: 63 Year
  Sex: Female
  Weight: 58 kg

DRUGS (1)
  1. ALDACTONE [Suspect]
     Indication: CARDIAC FAILURE CONGESTIVE
     Dosage: 1 QD PO
     Route: 048
     Dates: start: 20080224, end: 20080317

REACTIONS (2)
  - ATRIOVENTRICULAR BLOCK [None]
  - HYPERKALAEMIA [None]
